FAERS Safety Report 6400866-X (Version None)
Quarter: 2009Q4

REPORT INFORMATION
  Report Type: 
  Country: None (occurrence: None)
  Receive Date: 20091009
  Receipt Date: 20090309
  Transmission Date: 20100525
  Serious: Yes (Life-Threatening, Hospitalization)
  Sender: FDA-Public Use
  Company Number: 210877

PATIENT
  Age: 13 Year
  Sex: Female
  Weight: 57 kg

DRUGS (1)
  1. METHOTREXATE [Suspect]
     Indication: CHEMOTHERAPY
     Dosage: 3 G/M2, ONCE
     Dates: start: 20090224, end: 20090224

REACTIONS (1)
  - CEREBROVASCULAR ACCIDENT [None]
